FAERS Safety Report 21918430 (Version 2)
Quarter: 2023Q1

REPORT INFORMATION
  Report Type: Report from Study
  Country: CO (occurrence: CO)
  Receive Date: 20230127
  Receipt Date: 20230207
  Transmission Date: 20230418
  Serious: Yes (Hospitalization, Other)
  Sender: FDA-Public Use
  Company Number: CO-ABBVIE-4281408

PATIENT
  Age: 41 Year
  Sex: Male

DRUGS (1)
  1. VENCLEXTA [Suspect]
     Active Substance: VENETOCLAX
     Indication: Acute myeloid leukaemia
     Dosage: FORM STRENGTH: 100 MILLIGRAM; BLOOD DISORDER OCCURRED IN JAN 2023
     Route: 048
     Dates: start: 20230110, end: 20230118

REACTIONS (5)
  - Blood disorder [Recovering/Resolving]
  - Pyrexia [Recovered/Resolved]
  - Neutropenia [Not Recovered/Not Resolved]
  - Haemoglobin decreased [Not Recovered/Not Resolved]
  - Platelet disorder [Recovering/Resolving]

NARRATIVE: CASE EVENT DATE: 20230118
